FAERS Safety Report 8069272-9 (Version None)
Quarter: 2012Q1

REPORT INFORMATION
  Report Type: 
  Country: None (occurrence: None)
  Receive Date: 20120125
  Receipt Date: 20120123
  Transmission Date: 20120608
  Serious: No
  Sender: FDA-Public Use
  Company Number: PHEH2011US012832

PATIENT
  Age: 7 Year
  Sex: Male
  Weight: 25.85 kg

DRUGS (1)
  1. TOBI [Suspect]
     Dosage: 300 MG, BID
     Dates: start: 20100629

REACTIONS (1)
  - INFECTION [None]
